FAERS Safety Report 8092193-2 (Version None)
Quarter: 2012Q1

REPORT INFORMATION
  Report Type: 
  Country: None (occurrence: None)
  Receive Date: 20120129
  Receipt Date: 20111121
  Transmission Date: 20120608
  Serious: No
  Sender: FDA-Public Use
  Company Number: US-ABBOTT-11P-163-0876654-00

PATIENT
  Sex: Female

DRUGS (6)
  1. VYTORIN [Concomitant]
     Indication: BLOOD CHOLESTEROL INCREASED
  2. METHOTREXATE [Concomitant]
     Indication: PSORIATIC ARTHROPATHY
  3. CLOBETASOL [Concomitant]
     Indication: PSORIASIS
  4. NABUMETONE [Concomitant]
     Indication: PSORIATIC ARTHROPATHY
  5. SYNTHROID [Concomitant]
     Indication: HYPOTHYROIDISM
  6. HUMIRA [Suspect]
     Indication: PSORIATIC ARTHROPATHY
     Dates: start: 20080701

REACTIONS (2)
  - OVERGROWTH BACTERIAL [None]
  - MALAISE [None]
